FAERS Safety Report 10906643 (Version 1)
Quarter: 2015Q1

REPORT INFORMATION
  Report Type: Spontaneous
  Country: US (occurrence: None)
  Receive Date: 20150309
  Receipt Date: 20150309
  Transmission Date: 20150721
  Serious: Yes (Life-Threatening, Hospitalization, Disabling)
  Sender: FDA-Public Use
  Company Number: None

PATIENT
  Age: 26 Year
  Sex: Female
  Weight: 43.09 kg

DRUGS (4)
  1. XANEX [Concomitant]
  2. SEROQUEL [Concomitant]
     Active Substance: QUETIAPINE FUMARATE
  3. VIVITROL [Suspect]
     Active Substance: NALTREXONE
     Dosage: ONCE A MONTH INTO THE MUSCLE
     Dates: start: 20140903, end: 20150307
  4. ADDEROL [Concomitant]

REACTIONS (6)
  - Paraesthesia [None]
  - Superior mesenteric artery syndrome [None]
  - Blindness [None]
  - Hypoaesthesia [None]
  - Pancreatitis [None]
  - Back pain [None]

NARRATIVE: CASE EVENT DATE: 20150225
